FAERS Safety Report 9112516 (Version 3)
Quarter: 2013Q2

REPORT INFORMATION
  Report Type: Spontaneous
  Country: FR (occurrence: FR)
  Receive Date: 20130211
  Receipt Date: 20130414
  Transmission Date: 20140414
  Serious: Yes (Hospitalization)
  Sender: FDA-Public Use
  Company Number: FR-US-EMD SERONO, INC.-7192557

PATIENT
  Age: 29 Year
  Sex: Male

DRUGS (2)
  1. REBIF [Suspect]
     Indication: MULTIPLE SCLEROSIS
     Route: 058
     Dates: start: 201006, end: 201212
  2. DAFALGAN [Concomitant]
     Indication: PROPHYLAXIS

REACTIONS (5)
  - Sexual abuse [Unknown]
  - Compulsive sexual behaviour [Unknown]
  - Suicidal ideation [Unknown]
  - Homicidal ideation [Unknown]
  - Aggression [Unknown]
